FAERS Safety Report 5514949-X (Version None)
Quarter: 2007Q4

REPORT INFORMATION
  Report Type: 
  Country: None (occurrence: None)
  Receive Date: 20071113
  Receipt Date: 20061017
  Transmission Date: 20080405
  Serious: No
  Sender: FDA-Public Use
  Company Number: A0623921A

PATIENT
  Age: 83 Year
  Sex: Male

DRUGS (5)
  1. COREG [Suspect]
     Dosage: 6.25MG TWICE PER DAY
     Route: 048
  2. LIPITOR [Concomitant]
  3. VASOTEC [Concomitant]
  4. LEVOXYL [Concomitant]
  5. COUMADIN [Concomitant]

REACTIONS (2)
  - FATIGUE [None]
  - SOMNOLENCE [None]
